FAERS Safety Report 5608703-8 (Version None)
Quarter: 2008Q1

REPORT INFORMATION
  Report Type: 
  Country: None (occurrence: None)
  Receive Date: 20080131
  Receipt Date: 20080119
  Transmission Date: 20080703
  Serious: Yes (Other)
  Sender: FDA-Public Use
  Company Number: US-PFIZER INC-2007099815

PATIENT
  Sex: Female
  Weight: 104.54 kg

DRUGS (13)
  1. XALATAN [Suspect]
     Indication: CATARACT
     Route: 031
  2. XALATAN [Suspect]
     Indication: GLAUCOMA
  3. PREVACID [Concomitant]
     Indication: GASTROOESOPHAGEAL REFLUX DISEASE
  4. RISPERDAL [Concomitant]
  5. ZOLOFT [Concomitant]
  6. VALSARTAN [Concomitant]
  7. ALL OTHER THERAPEUTIC PRODUCTS [Concomitant]
  8. ASPIRIN [Concomitant]
  9. METOCLOPRAMIDE [Concomitant]
  10. LESCOL XL [Concomitant]
  11. ASCORBIC ACID [Concomitant]
  12. TIMOLOL MALEATE [Concomitant]
     Route: 047
  13. ALPRAZOLAM [Concomitant]

REACTIONS (6)
  - GLARE [None]
  - INCORRECT DOSE ADMINISTERED [None]
  - INTRAOCULAR PRESSURE INCREASED [None]
  - KNEE OPERATION [None]
  - NO ADVERSE EVENT [None]
  - VISUAL ACUITY TESTS [None]
